FAERS Safety Report 8845520 (Version 2)
Quarter: 2013Q2

REPORT INFORMATION
  Report Type: Spontaneous
  Country: US (occurrence: None)
  Receive Date: 20120426
  Receipt Date: 20121031
  Transmission Date: 20140414
  Serious: No
  Sender: FDA-Public Use
  Company Number: PHEH2012US004206

PATIENT
  Age: 56 Year
  Sex: Female

DRUGS (3)
  1. GILENYA [Suspect]
     Indication: MULTIPLE SCLEROSIS
     Route: 048
     Dates: start: 20111128
  2. BACLOFEN (BACLOFEN) [Concomitant]
  3. XIFAXAN (RIFAXIMIN) [Concomitant]

REACTIONS (5)
  - Abdominal distension [None]
  - Gastrointestinal sounds abnormal [None]
  - Aphagia [None]
  - Flatulence [None]
  - Abdominal discomfort [None]
